FAERS Safety Report 12699537 (Version 1)
Quarter: 2016Q3

REPORT INFORMATION
  Report Type: Spontaneous
  Country: ZA (occurrence: ZA)
  Receive Date: 20160830
  Receipt Date: 20160830
  Transmission Date: 20161109
  Serious: Yes (Other)
  Sender: FDA-Public Use
  Company Number: PHHY2016ZA116871

PATIENT
  Sex: Female

DRUGS (1)
  1. ACLASTA [Suspect]
     Active Substance: ZOLEDRONIC ACID
     Indication: PRODUCT USED FOR UNKNOWN INDICATION
     Dosage: UNK
     Route: 065
     Dates: start: 20160713

REACTIONS (5)
  - Dyspepsia [Unknown]
  - Muscular weakness [Unknown]
  - Groin pain [Unknown]
  - Developmental hip dysplasia [Unknown]
  - Pain in extremity [Unknown]
